FAERS Safety Report 8418572-9 (Version None)
Quarter: 2012Q2

REPORT INFORMATION
  Report Type: 
  Country: None (occurrence: None)
  Receive Date: 20120607
  Receipt Date: 20120514
  Transmission Date: 20120825
  Serious: No
  Sender: FDA-Public Use
  Company Number: US-PFIZER INC-2012131079

PATIENT
  Sex: Female
  Weight: 104 kg

DRUGS (2)
  1. INSULIN [Concomitant]
     Dosage: UNK
  2. MIGLITOL [Suspect]
     Indication: DIABETES MELLITUS
     Dosage: 25 MG, 3X/DAY
     Route: 048
     Dates: end: 20120509

REACTIONS (1)
  - BLOOD GLUCOSE INCREASED [None]
